FAERS Safety Report 8607285 (Version 2)
Quarter: 2014Q1

REPORT INFORMATION
  Report Type: Spontaneous
  Country: US (occurrence: US)
  Receive Date: 20120611
  Receipt Date: 20140114
  Transmission Date: 20141002
  Serious: Yes (Disabling, Other)
  Sender: FDA-Public Use
  Company Number: US-ASTRAZENECA-2012SE34885

PATIENT
  Sex: Male
  Weight: 117.9 kg

DRUGS (9)
  1. NEXIUM [Suspect]
     Indication: GASTROOESOPHAGEAL REFLUX DISEASE
     Dosage: 1 DAILY
     Route: 048
     Dates: start: 20010427, end: 201010
  2. OMEPRAZOLE [Suspect]
     Route: 048
     Dates: start: 20080527, end: 20131001
  3. PRILOSEC OTC [Suspect]
     Route: 048
     Dates: start: 20010109, end: 20070828
  4. HYDROCODONE [Concomitant]
     Dates: start: 20001115
  5. CEFTIN [Concomitant]
  6. NORVASC [Concomitant]
  7. CELEBREX [Concomitant]
     Dates: start: 20010515
  8. IBUPROFEN [Concomitant]
     Dates: start: 20011016
  9. ZETIA [Concomitant]
     Dates: start: 20040323

REACTIONS (8)
  - Hip fracture [Unknown]
  - Musculoskeletal discomfort [Unknown]
  - Accident [Unknown]
  - Malaise [Unknown]
  - Femoral neck fracture [Unknown]
  - Osteoporosis [Unknown]
  - Arthritis [Unknown]
  - Rheumatoid arthritis [Unknown]
